FAERS Safety Report 13970403 (Version 1)
Quarter: 2017Q3

REPORT INFORMATION
  Report Type: Spontaneous
  Country: US (occurrence: US)
  Receive Date: 20170914
  Receipt Date: 20170914
  Transmission Date: 20171128
  Serious: Yes (Hospitalization)
  Sender: FDA-Public Use
  Company Number: US-UNITED THERAPEUTICS-UNT-2017-012576

PATIENT
  Sex: Female

DRUGS (1)
  1. TYVASO [Suspect]
     Active Substance: TREPROSTINIL
     Indication: PULMONARY ARTERIAL HYPERTENSION
     Dosage: 90 ?G, QID
     Dates: start: 20140514

REACTIONS (5)
  - Post procedural haemorrhage [Unknown]
  - Off label use [Unknown]
  - Ulcer [Unknown]
  - Stent placement [Unknown]
  - Nausea [Unknown]

NARRATIVE: CASE EVENT DATE: 201708
